FAERS Safety Report 4315876-6 (Version None)
Quarter: 2004Q1

REPORT INFORMATION
  Report Type: 
  Country: None (occurrence: None)
  Receive Date: 20040310
  Receipt Date: 20040225
  Transmission Date: 20041129
  Serious: No
  Sender: FDA-Public Use
  Company Number: 04P-163-0251758-00

PATIENT
  Age: 46 Year
  Sex: Female

DRUGS (2)
  1. SEVOFLURANE [Suspect]
     Indication: GENERAL ANAESTHESIA
     Dates: start: 20010828, end: 20010828
  2. ISOFLURANE [Suspect]
     Indication: GENERAL ANAESTHESIA
     Dates: start: 20010828, end: 20010828

REACTIONS (6)
  - AUTONOMIC NEUROPATHY [None]
  - CHILLS [None]
  - IMMUNE SYSTEM DISORDER [None]
  - PALPITATIONS [None]
  - TACHYCARDIA [None]
  - TREMOR [None]
